FAERS Safety Report 4356440-2 (Version None)
Quarter: 2004Q2

REPORT INFORMATION
  Report Type: 
  Country: None (occurrence: None)
  Receive Date: 20040512
  Receipt Date: 20031223
  Transmission Date: 20050107
  Serious: No
  Sender: FDA-Public Use
  Company Number: US-GLAXOSMITHKLINE-A0444103A

PATIENT
  Age: 48 Year
  Sex: Female

DRUGS (8)
  1. RELAFEN [Suspect]
     Indication: RHEUMATOID ARTHRITIS
     Dosage: 1000MG TWICE PER DAY
     Route: 048
  2. METHOTREXATE [Concomitant]
  3. PREDNISONE [Concomitant]
  4. FOLIC ACID [Concomitant]
  5. ATENOLOL [Concomitant]
  6. REMICADE [Concomitant]
  7. OXYCONTIN [Concomitant]
  8. ZELNORM [Concomitant]

REACTIONS (1)
  - RETINOGRAM ABNORMAL [None]
